FAERS Safety Report 10980080 (Version 1)
Quarter: 2015Q2

REPORT INFORMATION
  Report Type: Spontaneous
  Country: US (occurrence: US)
  Receive Date: 20150402
  Receipt Date: 20150402
  Transmission Date: 20150821
  Serious: Yes (Life-Threatening, Hospitalization, Disabling, Other)
  Sender: FDA-Public Use
  Company Number: US-GLAXOSMITHKLINE-US2015GSK044100

PATIENT
  Age: 37 Year
  Sex: Female

DRUGS (16)
  1. BENLYSTA [Suspect]
     Active Substance: BELIMUMAB
     Indication: SYSTEMIC LUPUS ERYTHEMATOSUS
     Dosage: UNK, CYC EVERY 4 WEEKS
     Route: 042
     Dates: start: 20110809, end: 20140910
  2. CYMBALTA [Concomitant]
     Active Substance: DULOXETINE HYDROCHLORIDE
  3. DEXILANT [Concomitant]
     Active Substance: DEXLANSOPRAZOLE
  4. VITAMIN D [Concomitant]
     Active Substance: CHOLECALCIFEROL
  5. SALAGEN [Concomitant]
     Active Substance: PILOCARPINE HYDROCHLORIDE
  6. AZITHROMYCIN [Concomitant]
     Active Substance: AZITHROMYCIN ANHYDROUS
  7. TRIAMCINOLONE CREAM [Concomitant]
  8. PREDNISONE. [Concomitant]
     Active Substance: PREDNISONE
  9. LORAZEPAM. [Concomitant]
     Active Substance: LORAZEPAM
  10. DOXYCYCLINE. [Concomitant]
     Active Substance: DOXYCYCLINE
  11. DOMPERIDONE [Concomitant]
     Active Substance: DOMPERIDONE
  12. VORICONAZOLE. [Concomitant]
     Active Substance: VORICONAZOLE
  13. KENALOG ORABASE [Concomitant]
  14. RESTASIS [Concomitant]
     Active Substance: CYCLOSPORINE
  15. CALCIUM [Concomitant]
     Active Substance: CALCIUM
  16. VOLTAREN [Concomitant]
     Active Substance: DICLOFENAC SODIUM

REACTIONS (9)
  - Vomiting [Recovering/Resolving]
  - Impaired gastric emptying [Recovering/Resolving]
  - Dehydration [Recovering/Resolving]
  - Nausea [Recovering/Resolving]
  - Decreased appetite [Recovering/Resolving]
  - Gastrointestinal motility disorder [Recovering/Resolving]
  - Fungal infection [Recovering/Resolving]
  - Overgrowth bacterial [Recovering/Resolving]
  - Diarrhoea [Recovering/Resolving]

NARRATIVE: CASE EVENT DATE: 2012
